FAERS Safety Report 7985485-6 (Version None)
Quarter: 2011Q4

REPORT INFORMATION
  Report Type: 
  Country: None (occurrence: None)
  Receive Date: 20111216
  Receipt Date: 20111214
  Transmission Date: 20120403
  Serious: No
  Sender: FDA-Public Use
  Company Number: US-ABBOTT-11P-163-0883161-00

PATIENT

DRUGS (1)
  1. NIMBEX [Suspect]
     Indication: PRODUCT USED FOR UNKNOWN INDICATION
     Dosage: 20 MILLIGRAMS/10 MILLITERS DURING SURGICAL PROCEDURE
     Dates: start: 20111201, end: 20111201

REACTIONS (1)
  - DRUG INEFFECTIVE [None]
